FAERS Safety Report 17335622 (Version 1)
Quarter: 2020Q1

REPORT INFORMATION
  Report Type: Report from Study
  Country: JP (occurrence: JP)
  Receive Date: 20200128
  Receipt Date: 20200128
  Transmission Date: 20200409
  Serious: Yes (Hospitalization)
  Sender: FDA-Public Use
  Company Number: JP-ASTRAZENECA-2020SE13844

PATIENT
  Age: 76 Year
  Sex: Female
  Weight: 45 kg

DRUGS (14)
  1. FASENRA [Suspect]
     Active Substance: BENRALIZUMAB
     Indication: ASTHMA
     Dosage: 30 MG ONCE EVERY 8WEEKS AFTER 0,4,8WEEK
     Route: 058
     Dates: start: 20190712, end: 20190712
  2. FASENRA [Suspect]
     Active Substance: BENRALIZUMAB
     Indication: ASTHMA
     Dosage: 30 MG ONCE EVERY 8WEEKS AFTER 0,4,8WEEK
     Route: 058
     Dates: start: 20190906, end: 20191101
  3. CLARITHROMYCIN. [Concomitant]
     Active Substance: CLARITHROMYCIN
     Route: 048
  4. PREDONINE [Concomitant]
     Active Substance: PREDNISOLONE
     Route: 048
  5. MONTELUKAST [Concomitant]
     Active Substance: MONTELUKAST SODIUM
     Route: 048
  6. TELMISARTAN. [Concomitant]
     Active Substance: TELMISARTAN
     Route: 048
  7. DEPAS [Concomitant]
     Route: 048
  8. UNIPHYL LA [Concomitant]
     Active Substance: THEOPHYLLINE ANHYDROUS
     Route: 048
  9. FAMOTIDINE. [Concomitant]
     Active Substance: FAMOTIDINE
     Route: 048
  10. FORTEO [Concomitant]
     Active Substance: TERIPARATIDE
     Route: 058
  11. LENDORMIN [Concomitant]
     Active Substance: BROTIZOLAM
     Route: 048
  12. SPIRIVA [Concomitant]
     Active Substance: TIOTROPIUM BROMIDE MONOHYDRATE
     Route: 055
  13. NUCALA (MEPOLIZUMAB) [Concomitant]
     Indication: ASTHMA
     Route: 065
  14. ALVESCO [Concomitant]
     Active Substance: CICLESONIDE
     Dosage: 200 MCG INHALATION TWICE IN THE MORNING, ONCE IN THE EVENING
     Route: 055

REACTIONS (2)
  - Interstitial lung disease [Recovering/Resolving]
  - Dyspnoea exertional [Unknown]

NARRATIVE: CASE EVENT DATE: 201911
